FAERS Safety Report 5480103-3 (Version None)
Quarter: 2007Q4

REPORT INFORMATION
  Report Type: 
  Country: None (occurrence: None)
  Receive Date: 20071009
  Receipt Date: 20070927
  Transmission Date: 20080405
  Serious: Yes (Other)
  Sender: FDA-Public Use
  Company Number: US-JNJFOC-20070801165

PATIENT
  Sex: Female
  Weight: 62.14 kg

DRUGS (7)
  1. REMICADE [Suspect]
     Route: 042
  2. REMICADE [Suspect]
     Indication: RHEUMATOID ARTHRITIS
     Route: 042
  3. ATENOLOL [Concomitant]
     Indication: BLOOD PRESSURE
  4. LISINOPRIL [Concomitant]
     Indication: BLOOD PRESSURE
  5. LISINOPRIL/HCT [Concomitant]
     Indication: BLOOD PRESSURE
     Dosage: 20/25 DAILY
  6. MTX [Concomitant]
     Indication: RHEUMATOID ARTHRITIS
  7. MOBIC [Concomitant]

REACTIONS (3)
  - BLOOD PRESSURE INCREASED [None]
  - DISORIENTATION [None]
  - INFUSION RELATED REACTION [None]
